FAERS Safety Report 7685801-9 (Version None)
Quarter: 2011Q3

REPORT INFORMATION
  Report Type: 
  Country: None (occurrence: None)
  Receive Date: 20110815
  Receipt Date: 20110815
  Transmission Date: 20111222
  Serious: Yes (Other)
  Sender: FDA-Public Use
  Company Number: None

PATIENT
  Age: 6 Year
  Sex: Male
  Weight: 26.308 kg

DRUGS (2)
  1. MELOXICAM [Suspect]
     Indication: MUSCULOSKELETAL PAIN
     Dosage: 2 ML
     Route: 048
     Dates: start: 20110708, end: 20110718
  2. NAPROXEN [Concomitant]
     Indication: MUSCULOSKELETAL PAIN
     Dosage: 7 ML/8 ML
     Route: 048
     Dates: start: 20110723, end: 20110802

REACTIONS (1)
  - RASH [None]
